FAERS Safety Report 7471702-8 (Version None)
Quarter: 2011Q1

REPORT INFORMATION
  Report Type: 
  Country: None (occurrence: None)
  Receive Date: 20110302
  Receipt Date: 20100820
  Transmission Date: 20110831
  Serious: Yes (Hospitalization)
  Sender: FDA-Public Use
  Company Number: 163-21880-10072902

PATIENT
  Age: 72 Year
  Sex: Male

DRUGS (1)
  1. REVLIMID [Suspect]
     Indication: MULTIPLE MYELOMA
     Dosage: 25 MG, QD X7 D OFF 7D, PO
     Route: 048
     Dates: start: 20100501

REACTIONS (4)
  - CONCUSSION [None]
  - SPINAL FRACTURE [None]
  - CYSTITIS [None]
  - FALL [None]
